FAERS Safety Report 23145373 (Version 6)
Quarter: 2024Q1

REPORT INFORMATION
  Report Type: Spontaneous
  Country: US (occurrence: US)
  Receive Date: 20231103
  Receipt Date: 20240312
  Transmission Date: 20240410
  Serious: No
  Sender: FDA-Public Use
  Company Number: US-PFIZER INC-PV202300179368

PATIENT
  Age: 51 Year
  Sex: Female

DRUGS (2)
  1. IBRANCE [Suspect]
     Active Substance: PALBOCICLIB
     Dosage: 125 MG
  2. FULVESTRANT [Concomitant]
     Active Substance: FULVESTRANT

REACTIONS (14)
  - Nausea [Recovered/Resolved]
  - Headache [Recovered/Resolved]
  - Brain fog [Recovered/Resolved]
  - Abdominal pain upper [Recovered/Resolved]
  - Back pain [Recovered/Resolved]
  - Fatigue [Not Recovered/Not Resolved]
  - Arthralgia [Recovered/Resolved]
  - Decreased appetite [Recovered/Resolved]
  - Hot flush [Recovered/Resolved]
  - Vomiting [Recovered/Resolved]
  - Paranasal sinus discomfort [Recovered/Resolved]
  - Asthenia [Not Recovered/Not Resolved]
  - Taste disorder [Recovered/Resolved]
  - Hepatic pain [Recovered/Resolved]
